FAERS Safety Report 6184580-4 (Version None)
Quarter: 2009Q2

REPORT INFORMATION
  Report Type: 
  Country: None (occurrence: None)
  Receive Date: 20090508
  Receipt Date: 20090501
  Transmission Date: 20091009
  Serious: Yes (Hospitalization)
  Sender: FDA-Public Use
  Company Number: CG-MERCK-0905USA00466

PATIENT
  Age: 32 Year
  Sex: Female

DRUGS (1)
  1. STROMECTOL [Suspect]
     Route: 048
     Dates: start: 20081220

REACTIONS (3)
  - ASTHENIA [None]
  - DIARRHOEA [None]
  - URINARY INCONTINENCE [None]
